FAERS Safety Report 6287008-9 (Version None)
Quarter: 2009Q3

REPORT INFORMATION
  Report Type: 
  Country: None (occurrence: None)
  Receive Date: 20090727
  Receipt Date: 20090727
  Transmission Date: 20100115
  Serious: Yes (Other)
  Sender: FDA-Public Use
  Company Number: None

PATIENT
  Age: 70 Year
  Sex: Female
  Weight: 61.6892 kg

DRUGS (5)
  1. FOSAMAX [Suspect]
     Indication: OSTEOPOROSIS PROPHYLAXIS
     Dosage: ONE TABLET ONCE A WEEK AND DRUG STORE P.O.
     Route: 048
     Dates: start: 20060506, end: 20080101
  2. FOSAMAX [Suspect]
     Indication: OSTEOPOROSIS PROPHYLAXIS
     Dosage: ONE TABLET ONCE A WEEK AND DRUG STORE P.O.
     Route: 048
     Dates: start: 20080101, end: 20081214
  3. CALCIUM SUPPLEMENT [Concomitant]
  4. VITAMIN D SUPPLEMENT [Concomitant]
  5. VITAMIN C SUPPLEMENT [Concomitant]

REACTIONS (8)
  - ACTIVITIES OF DAILY LIVING IMPAIRED [None]
  - BONE PAIN [None]
  - DEPRESSION [None]
  - FRUSTRATION [None]
  - INSOMNIA [None]
  - JOINT STIFFNESS [None]
  - MOBILITY DECREASED [None]
  - PAIN IN EXTREMITY [None]
